FAERS Safety Report 6835920-1 (Version None)
Quarter: 2010Q3

REPORT INFORMATION
  Report Type: 
  Country: None (occurrence: None)
  Receive Date: 20100712
  Receipt Date: 20100712
  Transmission Date: 20110219
  Serious: Yes (Other)
  Sender: FDA-Public Use
  Company Number: None

PATIENT
  Age: 43 Year
  Sex: Male
  Weight: 83.4619 kg

DRUGS (3)
  1. CIPROFLOXACIN [Suspect]
     Indication: EAR INFECTION
     Dosage: 500 MG 2X DAY ORAL 047
     Route: 048
     Dates: start: 20100607, end: 20100610
  2. CIPROFLOXACIN [Suspect]
     Indication: EAR INFECTION
     Dosage: 250 MG 2X DAY ORAL 047
     Route: 048
     Dates: start: 20100610, end: 20100612
  3. TOBRAMYCIN [Concomitant]

REACTIONS (14)
  - BLOOD PRESSURE INCREASED [None]
  - CHILLS [None]
  - DISSOCIATION [None]
  - FEAR [None]
  - FEELING ABNORMAL [None]
  - HEADACHE [None]
  - HEART RATE INCREASED [None]
  - HYPOREFLEXIA [None]
  - MOOD ALTERED [None]
  - MUSCLE SPASMS [None]
  - MUSCULAR WEAKNESS [None]
  - MYALGIA [None]
  - NERVOUS SYSTEM DISORDER [None]
  - RESTLESSNESS [None]
